FAERS Safety Report 5684290-3 (Version None)
Quarter: 2008Q1

REPORT INFORMATION
  Report Type: 
  Country: None (occurrence: None)
  Receive Date: 20080328
  Receipt Date: 20080328
  Transmission Date: 20080703
  Serious: Yes (Other)
  Sender: FDA-Public Use
  Company Number: A0718058A

PATIENT
  Age: 45 Year
  Sex: Female
  Weight: 93.2 kg

DRUGS (7)
  1. ALLI [Suspect]
     Indication: WEIGHT LOSS DIET
     Route: 048
     Dates: start: 20080310, end: 20080324
  2. MULTI-VITAMIN [Concomitant]
  3. ASPIRIN [Concomitant]
  4. THYROID TAB [Concomitant]
  5. ANTI-CHOLESTEROL MEDICATION [Concomitant]
  6. CELEXA [Concomitant]
  7. WELLBUTRIN [Concomitant]

REACTIONS (2)
  - HAEMATOCHEZIA [None]
  - RECTAL HAEMORRHAGE [None]
